FAERS Safety Report 8013116-8 (Version None)
Quarter: 2011Q4

REPORT INFORMATION
  Report Type: 
  Country: None (occurrence: None)
  Receive Date: 20111229
  Receipt Date: 20111219
  Transmission Date: 20120403
  Serious: Yes (Hospitalization)
  Sender: FDA-Public Use
  Company Number: SE-JNJFOC-20111208136

PATIENT
  Age: 51 Year
  Sex: Male

DRUGS (3)
  1. REMICADE [Suspect]
     Route: 042
     Dates: start: 20111207
  2. REMICADE [Suspect]
     Route: 042
     Dates: start: 20010906
  3. REMICADE [Suspect]
     Indication: ANKYLOSING SPONDYLITIS
     Route: 042
     Dates: start: 20111021

REACTIONS (2)
  - LARGE INTESTINAL ULCER HAEMORRHAGE [None]
  - DIVERTICULAR PERFORATION [None]
